FAERS Safety Report 7353126-7 (Version None)
Quarter: 2011Q1

REPORT INFORMATION
  Report Type: 
  Country: None (occurrence: None)
  Receive Date: 20110304
  Receipt Date: 20110215
  Transmission Date: 20110831
  Serious: Yes (Other)
  Sender: FDA-Public Use
  Company Number: 201110172

PATIENT
  Age: 29 Year
  Sex: Male

DRUGS (1)
  1. GABALON INTRATHECAL(BACLOFEN INJECTION) [Suspect]
     Indication: MUSCLE SPASTICITY
     Dosage: MCG, DAILY, INTRATHECAL
     Route: 037

REACTIONS (2)
  - IMPLANT SITE INFECTION [None]
  - DECUBITUS ULCER [None]
